FAERS Safety Report 20386998 (Version 1)
Quarter: 2022Q1

REPORT INFORMATION
  Report Type: Report from Study
  Country: US (occurrence: US)
  Receive Date: 20220127
  Receipt Date: 20220127
  Transmission Date: 20220423
  Serious: Yes (Death, Life-Threatening, Hospitalization, Other)
  Sender: FDA-Public Use
  Company Number: US-BRISTOL-MYERS SQUIBB COMPANY-BMS-2021-061703

PATIENT
  Age: 67 Year
  Sex: Female
  Weight: 64.863 kg

DRUGS (4)
  1. NIVOLUMAB [Suspect]
     Active Substance: NIVOLUMAB
     Indication: Pancreatic carcinoma metastatic
     Dosage: 240 MG Q2WEEKS (10 MG/KG)
     Route: 042
     Dates: start: 20210505, end: 20210616
  2. IPILIMUMAB [Suspect]
     Active Substance: IPILIMUMAB
     Indication: Pancreatic carcinoma metastatic
     Dosage: 55 MG Q6W (5 MG/KG)
     Route: 042
     Dates: start: 20210505, end: 20210616
  3. ELIQUIS [Concomitant]
     Active Substance: APIXABAN
     Indication: Product used for unknown indication
     Route: 065
  4. MIRALAX [Concomitant]
     Active Substance: POLYETHYLENE GLYCOL 3350
     Indication: Product used for unknown indication

REACTIONS (9)
  - Shock haemorrhagic [Fatal]
  - Hypotension [Unknown]
  - Pyrexia [Recovering/Resolving]
  - Gastric haemorrhage [Unknown]
  - Sepsis [Unknown]
  - CD4 lymphocytes decreased [Unknown]
  - Neutrophil count decreased [Unknown]
  - Platelet count decreased [Unknown]
  - Anaemia [Unknown]

NARRATIVE: CASE EVENT DATE: 20210621
